FAERS Safety Report 10011050 (Version 1)
Quarter: 2014Q1

REPORT INFORMATION
  Report Type: Spontaneous
  Country: US (occurrence: US)
  Receive Date: 20140314
  Receipt Date: 20140314
  Transmission Date: 20141002
  Serious: Yes (Hospitalization)
  Sender: FDA-Public Use
  Company Number: US-BAYER-2014-037583

PATIENT
  Age: 34 Year
  Sex: Female
  Weight: 117.1 kg

DRUGS (8)
  1. YASMIN [Suspect]
     Route: 048
  2. YAZ [Suspect]
     Route: 048
  3. ACETAMINOPHEN W/HYDROCODONE [Concomitant]
     Dosage: UNK
     Dates: start: 20070330
  4. ACETAMINOPHEN W/HYDROCODONE [Concomitant]
     Dosage: 7.5/750 ; UNK
     Dates: start: 20070412
  5. MOTRIN [Concomitant]
  6. TYLENOL [PARACETAMOL] [Concomitant]
  7. MULTIVITAMIN [Concomitant]
  8. CALCIUM [Concomitant]

REACTIONS (2)
  - Pulmonary embolism [None]
  - Deep vein thrombosis [None]
